FAERS Safety Report 21984770 (Version 4)
Quarter: 2023Q2

REPORT INFORMATION
  Report Type: Spontaneous
  Country: JP (occurrence: JP)
  Receive Date: 20230213
  Receipt Date: 20230407
  Transmission Date: 20230721
  Serious: Yes (Death, Hospitalization, Other)
  Sender: FDA-Public Use
  Company Number: JP-GLAXOSMITHKLINE-JP2023JPN020090

PATIENT

DRUGS (14)
  1. DAPRODUSTAT [Suspect]
     Active Substance: DAPRODUSTAT
     Indication: Nephrogenic anaemia
     Dosage: UNK
     Route: 048
  2. DAPRODUSTAT [Suspect]
     Active Substance: DAPRODUSTAT
     Dosage: 24 MG, QD
     Route: 048
     Dates: start: 2022
  3. DAPRODUSTAT [Suspect]
     Active Substance: DAPRODUSTAT
     Dosage: 20 MG, QD
     Route: 048
     Dates: start: 2023
  4. TOLVAPTAN [Concomitant]
     Active Substance: TOLVAPTAN
     Dosage: 1 DF,  AFTER BREAKFASTBREAKFAST
  5. LANSOPRAZOLE [Concomitant]
     Active Substance: LANSOPRAZOLE
     Dosage: 15 MG, QD, AFTER BREAKFAST
  6. TENELIA OD [Concomitant]
     Dosage: 2 DF, QD, AFTER BREAKFAST
  7. BISOPROLOL [Concomitant]
     Active Substance: BISOPROLOL
     Dosage: 1.25 MG, QD, AFTER BREAKFAST
  8. ENTRESTO (SACUBITRIL VALSARTAN SODIUM HYDRATE) [Concomitant]
     Dosage: 200 MG, BID, AFTER BREAKFAST AND SUPPER
  9. MAGNESIUM OXIDE [Concomitant]
     Active Substance: MAGNESIUM OXIDE
     Dosage: 330 MG, TID, AFTER BREAKFAST, LUNCH, AND SUPPER
  10. BROTIZOLAM OD TABLETS [Concomitant]
     Dosage: 0.25 MG, QD, BEFORE BEDTIME
  11. AMITIZA CAPSULE [Concomitant]
     Dosage: 2 DF, BID, AFTER BREAKFAST AND SUPPER
  12. MIYA-BM [Concomitant]
     Active Substance: CLOSTRIDIUM BUTYRICUM SPORES STRAIN M-55
     Dosage: 2 DF, TID, AFTER BREAKFAST, LUNCH, AND SUPPER
  13. FUROSEMIDE [Concomitant]
     Active Substance: FUROSEMIDE
     Dosage: 80 MG, QD, AFTER BREAKFAST
  14. SPIRONOLACTONE [Concomitant]
     Active Substance: SPIRONOLACTONE
     Dosage: 25 MG, QD, AFTER BREAKFAST

REACTIONS (4)
  - Hospitalisation [Unknown]
  - Dysphagia [Unknown]
  - Death [Fatal]
  - Product use issue [Unknown]

NARRATIVE: CASE EVENT DATE: 20221101
